FAERS Safety Report 20889399 (Version 1)
Quarter: 2022Q2

REPORT INFORMATION
  Report Type: Spontaneous
  Country: IR (occurrence: IR)
  Receive Date: 20220530
  Receipt Date: 20220530
  Transmission Date: 20220720
  Serious: Yes (Hospitalization, Other)
  Sender: FDA-Public Use
  Company Number: IR-IPCA LABORATORIES LIMITED-IPC-2022-IR-000611

PATIENT

DRUGS (4)
  1. METFORMIN [Suspect]
     Active Substance: METFORMIN HYDROCHLORIDE
     Indication: Weight decreased
     Dosage: 500 MILLIGRAM, QD (20-30 PILLS)
     Route: 065
  2. RISPERIDONE [Concomitant]
     Active Substance: RISPERIDONE
     Indication: Body dysmorphic disorder
     Dosage: UNK
     Route: 065
  3. FLUOXETINE [Concomitant]
     Active Substance: FLUOXETINE HYDROCHLORIDE
     Indication: Body dysmorphic disorder
     Dosage: UNK
     Route: 065
  4. AMITRIPTYLINE [Concomitant]
     Active Substance: AMITRIPTYLINE
     Indication: Body dysmorphic disorder
     Dosage: UNK
     Route: 065

REACTIONS (23)
  - Acute kidney injury [Recovered/Resolved]
  - Orthopnoea [Recovered/Resolved]
  - Cardiogenic shock [Recovered/Resolved]
  - Autoimmune myocarditis [Recovered/Resolved]
  - Myelitis transverse [Recovered/Resolved]
  - Confusional state [Recovered/Resolved]
  - Respiratory distress [Recovered/Resolved]
  - Sinus tachycardia [Recovered/Resolved]
  - Pancytopenia [Recovered/Resolved]
  - Hyponatraemia [Recovered/Resolved]
  - Lactic acidosis [Recovered/Resolved]
  - Anaemia megaloblastic [Recovered/Resolved]
  - Mental status changes [Recovered/Resolved]
  - Toxicity to various agents [Recovered/Resolved]
  - Hypokinesia [Recovered/Resolved]
  - Myocardial fibrosis [Recovered/Resolved]
  - Lethargy [Recovered/Resolved]
  - Vasculitis [Recovered/Resolved]
  - Pleural effusion [Recovered/Resolved]
  - Cardiomegaly [Recovered/Resolved]
  - Loss of consciousness [Recovered/Resolved]
  - Drug abuse [Unknown]
  - Overdose [Unknown]
